FAERS Safety Report 6522031-8 (Version None)
Quarter: 2009Q4

REPORT INFORMATION
  Report Type: 
  Country: None (occurrence: None)
  Receive Date: 20091230
  Receipt Date: 20091217
  Transmission Date: 20100525
  Serious: Yes (Life-Threatening)
  Sender: FDA-Public Use
  Company Number: JP-PFIZER INC-2009312651

PATIENT
  Age: 67 Year
  Sex: Male
  Weight: 45.4 kg

DRUGS (12)
  1. SILDENAFIL CITRATE [Suspect]
     Indication: PULMONARY ARTERIAL HYPERTENSION
     Dosage: 20 MG, 2X/DAY
     Route: 048
     Dates: start: 20090205, end: 20090305
  2. BOSENTAN [Concomitant]
     Indication: PULMONARY ARTERIAL HYPERTENSION
     Dosage: UNK
     Route: 048
  3. BERAPROST SODIUM [Concomitant]
     Indication: PULMONARY ARTERIAL HYPERTENSION
     Dosage: UNK
     Route: 048
  4. PREDNISOLONE [Concomitant]
     Dosage: UNK
     Route: 048
  5. TAKEPRON [Concomitant]
     Dosage: UNK
     Route: 048
  6. ALENDRONATE SODIUM [Concomitant]
     Dosage: UNK
     Route: 048
  7. MUCOSOLVAN [Concomitant]
     Dosage: UNK
     Route: 048
  8. MUCOSTA [Concomitant]
     Dosage: UNK
     Route: 048
  9. LAC B [Concomitant]
     Dosage: UNK
     Route: 048
  10. WARFARIN POTASSIUM [Concomitant]
     Dosage: UNK
     Route: 048
  11. ANPLAG [Concomitant]
     Dosage: UNK
     Route: 048
  12. LIPLE [Concomitant]
     Dosage: UNK
     Route: 042

REACTIONS (1)
  - VENTRICULAR TACHYCARDIA [None]
